FAERS Safety Report 25995896 (Version 1)
Quarter: 2025Q4

REPORT INFORMATION
  Report Type: Spontaneous
  Country: US (occurrence: US)
  Receive Date: 20251104
  Receipt Date: 20251104
  Transmission Date: 20260117
  Serious: Yes (Other)
  Sender: SANOFI AVENTIS
  Company Number: US-SA-2025SA325701

PATIENT
  Age: 73 Year
  Sex: Female
  Weight: 79.95 kg

DRUGS (21)
  1. KEVZARA [Suspect]
     Active Substance: SARILUMAB
     Indication: Giant cell arteritis
     Dosage: 200 MG, QOW
     Route: 058
  2. KEVZARA [Suspect]
     Active Substance: SARILUMAB
     Indication: Polymyalgia rheumatica
  3. CALCIUM CARBONATE WITH VITAMIN D (CHOLECALCIFEROL) [Concomitant]
     Active Substance: CALCIUM CARBONATE\CHOLECALCIFEROL
  4. LATANOPROST [Concomitant]
     Active Substance: LATANOPROST
  5. RANOLAZINE [Concomitant]
     Active Substance: RANOLAZINE
  6. ALPHAGAN P [Concomitant]
     Active Substance: BRIMONIDINE TARTRATE
  7. MELATONIN [Concomitant]
     Active Substance: MELATONIN
  8. COENZYME Q10 [Concomitant]
     Active Substance: DIETARY SUPPLEMENT\UBIDECARENONE
  9. MAGNESIUM [Concomitant]
     Active Substance: MAGNESIUM
  10. LINZESS [Concomitant]
     Active Substance: LINACLOTIDE
  11. PEPCID [Concomitant]
     Active Substance: FAMOTIDINE
  12. TYLENOL ARTHRITIS PAIN [Concomitant]
     Active Substance: ACETAMINOPHEN
  13. VITAMINS [Concomitant]
     Active Substance: VITAMINS
  14. .ALPHA.-TOCOPHEROL SUCCINATE, D- [Concomitant]
     Active Substance: .ALPHA.-TOCOPHEROL SUCCINATE, D-
  15. PREDNISONE [Concomitant]
     Active Substance: PREDNISONE
  16. LASIX [Concomitant]
     Active Substance: FUROSEMIDE
  17. POTASSIUM CHLORIDE [Concomitant]
     Active Substance: POTASSIUM CHLORIDE
  18. PROTONIX [Concomitant]
     Active Substance: PANTOPRAZOLE SODIUM
  19. METOPROLOL TARTRATE [Concomitant]
     Active Substance: METOPROLOL TARTRATE
  20. ROSUVASTATIN CALCIUM [Concomitant]
     Active Substance: ROSUVASTATIN CALCIUM
  21. XARELTO [Concomitant]
     Active Substance: RIVAROXABAN

REACTIONS (1)
  - Atrial fibrillation [Unknown]

NARRATIVE: CASE EVENT DATE: 20251024
